FAERS Safety Report 5122758-9 (Version None)
Quarter: 2006Q4

REPORT INFORMATION
  Report Type: 
  Country: None (occurrence: None)
  Receive Date: 20061004
  Receipt Date: 20060920
  Transmission Date: 20070319
  Serious: Yes (Hospitalization)
  Sender: FDA-Public Use
  Company Number: 14858

PATIENT
  Age: 37 Year
  Sex: Male

DRUGS (6)
  1. CISPLATIN [Suspect]
     Indication: TESTIS CANCER
     Dosage: 40 MG/M2 PER_CYCLE
  2. CISPLATIN [Suspect]
     Indication: TESTIS CANCER
     Dosage: 20 MG/M2 PER_CYCLE
  3. ETOPOSIDE [Suspect]
     Indication: TESTIS CANCER
     Dosage: 120 MG/M2 PER_CYCLE
  4. ETOPOSIDE [Suspect]
     Indication: TESTIS CANCER
     Dosage: 75 MG/M2 PER_CYCLE
  5. BLEOMYCIN [Suspect]
     Indication: TESTIS CANCER
     Dosage: 15 MG Q3W
  6. IFOSFAMIDE [Suspect]
     Indication: TESTIS CANCER
     Dosage: 1200 MG/M2 PER_CYCLE

REACTIONS (4)
  - CHONDROSARCOMA [None]
  - NEOPLASM RECURRENCE [None]
  - RETROPERITONEAL NEOPLASM [None]
  - TERATOMA [None]
